FAERS Safety Report 16871582 (Version 4)
Quarter: 2020Q1

REPORT INFORMATION
  Report Type: Report from Study
  Country: None (occurrence: US)
  Receive Date: 20191001
  Receipt Date: 20200207
  Transmission Date: 20200409
  Serious: Yes (Hospitalization)
  Sender: FDA-Public Use
  Company Number: US-ABBVIE-19K-163-2940389-00

PATIENT
  Age: 57 Year
  Sex: Female
  Weight: 145.28 kg

DRUGS (1)
  1. HUMIRA [Suspect]
     Active Substance: ADALIMUMAB
     Indication: CROHN^S DISEASE
     Route: 058
     Dates: start: 2017

REACTIONS (8)
  - Hypotension [Recovered/Resolved]
  - Weight increased [Unknown]
  - Cellulitis [Recovered/Resolved]
  - Dizziness [Recovered/Resolved]
  - Diabetes mellitus [Unknown]
  - Hunger [Not Recovered/Not Resolved]
  - Infection [Recovered/Resolved]
  - Dehydration [Recovered/Resolved]

NARRATIVE: CASE EVENT DATE: 201910
